FAERS Safety Report 4326814-4 (Version None)
Quarter: 2004Q1

REPORT INFORMATION
  Report Type: 
  Country: None (occurrence: None)
  Receive Date: 20040330
  Receipt Date: 20040323
  Transmission Date: 20041129
  Serious: Yes (Other)
  Sender: FDA-Public Use
  Company Number: PHBS2004BR04002

PATIENT
  Age: 22 Year
  Sex: Female

DRUGS (1)
  1. PARLODEL [Suspect]
     Indication: HYPERPROLACTINAEMIA
     Dosage: 5 MG, QD
     Route: 048
     Dates: start: 20040301, end: 20040301

REACTIONS (2)
  - TONGUE OEDEMA [None]
  - URTICARIA [None]
